FAERS Safety Report 7241626 (Version 8)
Quarter: 2015Q4

REPORT INFORMATION
  Report Type: Spontaneous
  Country: US (occurrence: US)
  Receive Date: 20100111
  Receipt Date: 20151124
  Transmission Date: 20160305
  Serious: Yes (Hospitalization, Other)
  Sender: FDA-Public Use
  Company Number: US-BAYER-201010216NA

PATIENT
  Age: 35 Year
  Sex: Female
  Weight: 105 kg

DRUGS (5)
  1. ASPIRIN. [Concomitant]
     Active Substance: ASPIRIN
     Dates: start: 2002
  2. CLOTRIMAZOLE W/BETAMETHASONE DIPROPIONAT [Concomitant]
     Dosage: 45 G, UNK
     Route: 061
     Dates: start: 20011014
  3. YASMIN [Suspect]
     Active Substance: DROSPIRENONE\ETHINYL ESTRADIOL
     Indication: MENSTRUAL CYCLE MANAGEMENT
     Dosage: UNK UNK, QD
     Route: 048
     Dates: start: 200207, end: 200210
  4. LISINOPRIL. [Concomitant]
     Active Substance: LISINOPRIL
  5. MEGESTROL ACETATE. [Concomitant]
     Active Substance: MEGESTROL ACETATE
     Dosage: 40 MG, UNK
     Dates: start: 200201, end: 200206

REACTIONS (19)
  - Frustration [None]
  - Learning disorder [Recovering/Resolving]
  - Dysarthria [Recovering/Resolving]
  - Headache [Recovering/Resolving]
  - Cerebrovascular accident [None]
  - Disturbance in attention [Recovering/Resolving]
  - Amnesia [Recovering/Resolving]
  - Psychiatric symptom [None]
  - Confusional state [Recovering/Resolving]
  - Aphasia [Recovering/Resolving]
  - Ischaemic cerebral infarction [Recovering/Resolving]
  - Tachycardia [None]
  - Stress [None]
  - Embolism [None]
  - Migraine [None]
  - Cholecystitis chronic [None]
  - Cholecystitis chronic [Unknown]
  - Cholelithiasis [Unknown]
  - Cognitive disorder [Recovering/Resolving]

NARRATIVE: CASE EVENT DATE: 200210
